FAERS Safety Report 7846574 (Version 4)
Quarter: 2016Q1

REPORT INFORMATION
  Report Type: Spontaneous
  Country: FR (occurrence: FR)
  Receive Date: 20110308
  Receipt Date: 20160205
  Transmission Date: 20160526
  Serious: Yes (Hospitalization, Other)
  Sender: FDA-Public Use
  Company Number: FR-ELI_LILLY_AND_COMPANY-FR201102007518

PATIENT
  Age: 35 Year
  Sex: Male

DRUGS (1)
  1. CYMBALTA [Suspect]
     Active Substance: DULOXETINE HYDROCHLORIDE
     Indication: DEPRESSION
     Dosage: 60 MG, DAILY (1/D)
     Dates: end: 20101104

REACTIONS (12)
  - Influenza [Not Recovered/Not Resolved]
  - Liver disorder [Recovered/Resolved]
  - Lymphadenopathy [Unknown]
  - Blood immunoglobulin E increased [Recovering/Resolving]
  - Asthenia [Unknown]
  - Eosinophilia [Recovered/Resolved]
  - Weight decreased [Unknown]
  - Hypersensitivity [Unknown]
  - Pruritus [Recovered/Resolved]
  - Dizziness [Unknown]
  - Strongyloidiasis [Unknown]
  - Abdominal pain [Recovered/Resolved]

NARRATIVE: CASE EVENT DATE: 20101018
